FAERS Safety Report 8016341-5 (Version None)
Quarter: 2011Q4

REPORT INFORMATION
  Report Type: 
  Country: None (occurrence: None)
  Receive Date: 20111230
  Receipt Date: 20111228
  Transmission Date: 20120403
  Serious: Yes (Hospitalization, Disabling, Other)
  Sender: FDA-Public Use
  Company Number: US-MERCK-0805USA00398

PATIENT
  Age: 66 Year
  Sex: Male
  Weight: 98 kg

DRUGS (5)
  1. FOSAMAX [Suspect]
     Indication: OSTEOPENIA
     Route: 048
     Dates: start: 20001018, end: 20010225
  2. FOSAMAX [Suspect]
     Route: 048
     Dates: start: 20010226, end: 20060101
  3. [THERAPY UNSPECIFIED] [Concomitant]
     Indication: RHEUMATOID ARTHRITIS
     Route: 065
     Dates: start: 19890101
  4. DIDRONEL [Concomitant]
     Indication: OSTEOPENIA
     Route: 065
     Dates: start: 19970826, end: 20001018
  5. CORTICOSTEROIDS (UNSPECIFIED) [Concomitant]
     Route: 065
     Dates: start: 19890101

REACTIONS (20)
  - GASTROINTESTINAL DISORDER [None]
  - OSTEOPOROSIS [None]
  - TONGUE DISCOLOURATION [None]
  - OSTEONECROSIS OF JAW [None]
  - SIDEROBLASTIC ANAEMIA [None]
  - HYPERTENSION [None]
  - KERATITIS [None]
  - WOUND DEHISCENCE [None]
  - ORAL TORUS [None]
  - LETHARGY [None]
  - ATRIOVENTRICULAR BLOCK [None]
  - DYSPNOEA [None]
  - WHITE BLOOD CELL COUNT DECREASED [None]
  - PERIRECTAL ABSCESS [None]
  - ORAL HERPES [None]
  - FATIGUE [None]
  - HEAD AND NECK CANCER [None]
  - ANGINA PECTORIS [None]
  - STOMATITIS [None]
  - TINEA PEDIS [None]
